FAERS Safety Report 7035972-2 (Version None)
Quarter: 2010Q4

REPORT INFORMATION
  Report Type: 
  Country: None (occurrence: None)
  Receive Date: 20101008
  Receipt Date: 20100924
  Transmission Date: 20110411
  Serious: Yes (Other)
  Sender: FDA-Public Use
  Company Number: CZ-BAYER-201034710GPV

PATIENT
  Age: 68 Year
  Sex: Male

DRUGS (5)
  1. NEXAVAR [Suspect]
     Indication: RENAL CANCER
     Dosage: UNIT DOSE: 200 MG
     Route: 048
     Dates: start: 20090428, end: 20090609
  2. NEXAVAR [Suspect]
     Route: 048
     Dates: start: 20100402, end: 20100408
  3. ROFERON-A [Concomitant]
     Dates: start: 20090801, end: 20100401
  4. TRALGIT [Concomitant]
     Dosage: TOTAL DAILY DOSE: 60 GTT
  5. BONDRONAT [Concomitant]

REACTIONS (2)
  - DERMATITIS EXFOLIATIVE [None]
  - SKIN NECROSIS [None]
